FAERS Safety Report 26176342 (Version 1)
Quarter: 2025Q4

REPORT INFORMATION
  Report Type: Spontaneous
  Country: AU (occurrence: AU)
  Receive Date: 20251218
  Receipt Date: 20251218
  Transmission Date: 20260119
  Serious: Yes (Death, Other)
  Sender: PURDUE
  Company Number: AU-PURDUE-USA-2025-0323117

PATIENT

DRUGS (4)
  1. MORPHINE SULFATE [Suspect]
     Active Substance: MORPHINE SULFATE
     Indication: Product used for unknown indication
     Dosage: ROUTE OF ADMINISTRATION: INFORMATION NOT PROVIDED BY SPONSOR
     Route: 065
  2. BUPRENORPHINE HYDROCHLORIDE [Suspect]
     Active Substance: BUPRENORPHINE HYDROCHLORIDE
     Indication: Product used for unknown indication
     Dosage: ROUTE OF ADMINISTRATION: INFORMATION NOT PROVIDED BY SPONSOR
     Route: 065
  3. DIAZEPAM [Suspect]
     Active Substance: DIAZEPAM
     Indication: Product used for unknown indication
     Dosage: ROUTE OF ADMINISTRATION: INFORMATION NOT PROVIDED BY SPONSOR
     Route: 065
  4. KETAMINE HYDROCHLORIDE [Suspect]
     Active Substance: KETAMINE HYDROCHLORIDE
     Indication: Product used for unknown indication
     Dosage: ROUTE OF ADMINISTRATION: INFORMATION NOT PROVIDED BY SPONSOR
     Route: 065

REACTIONS (2)
  - Road traffic accident [Fatal]
  - Substance abuse [Unknown]
